FAERS Safety Report 4666325-X (Version None)
Quarter: 2005Q2

REPORT INFORMATION
  Report Type: 
  Country: None (occurrence: None)
  Receive Date: 20050518
  Receipt Date: 20050512
  Transmission Date: 20051028
  Serious: Yes (Hospitalization)
  Sender: FDA-Public Use
  Company Number: CIP05001115

PATIENT
  Age: 79 Year
  Sex: Male

DRUGS (3)
  1. ASACOL [Suspect]
     Dosage: SEE IMAGE
     Route: 048
     Dates: start: 20010101
  2. ASACOL [Suspect]
     Dosage: SEE IMAGE
     Route: 048
     Dates: start: 20050401
  3. PAMELOR [Concomitant]

REACTIONS (2)
  - INTESTINAL OBSTRUCTION [None]
  - STOOL ANALYSIS ABNORMAL [None]
